FAERS Safety Report 4745532-1 (Version None)
Quarter: 2005Q3

REPORT INFORMATION
  Report Type: 
  Country: None (occurrence: None)
  Receive Date: 20050812
  Receipt Date: 20050801
  Transmission Date: 20060218
  Serious: Yes (Other)
  Sender: FDA-Public Use
  Company Number: 2005103713

PATIENT
  Age: 69 Year
  Sex: Female
  Weight: 49.8957 kg

DRUGS (16)
  1. NITROSTAT [Suspect]
     Indication: ANGINA PECTORIS
     Dosage: (0.4 MG), SUBLINGUAL
     Route: 060
     Dates: start: 20000101
  2. SPIRIVA [Suspect]
     Indication: ILL-DEFINED DISORDER
  3. ZOCOR [Suspect]
     Indication: ILL-DEFINED DISORDER
     Dates: end: 20050509
  4. OXYGEN (OXYGEN) [Concomitant]
  5. IPRATROPIUM BROMIDE [Concomitant]
  6. ATROVENT [Concomitant]
  7. AZMACORT [Concomitant]
  8. ALBUTEROL [Concomitant]
  9. SINGULAIR [Concomitant]
  10. SEREVENT [Concomitant]
  11. WELLBUTRIN [Concomitant]
  12. PHAZYME (DIASTASE, PANCREATIN, PEPSIN, SIMETICONE) [Concomitant]
  13. TYLENOL [Concomitant]
  14. CHONDROITIN/GLUCOSAMINE (CHONDROITIN, GLUCOSAMINE) [Concomitant]
  15. MUCINEX (GUAIFENESIN) [Concomitant]
  16. PEPCID [Concomitant]

REACTIONS (12)
  - ASTHENIA [None]
  - DRUG INEFFECTIVE [None]
  - ELECTROCARDIOGRAM ABNORMAL [None]
  - HEADACHE [None]
  - MYALGIA [None]
  - OBSTRUCTIVE AIRWAYS DISORDER [None]
  - PARAESTHESIA ORAL [None]
  - PHARMACEUTICAL PRODUCT COMPLAINT [None]
  - SHOULDER PAIN [None]
  - SWOLLEN TONGUE [None]
  - URTICARIA [None]
  - VITAL CAPACITY DECREASED [None]
